FAERS Safety Report 8807046 (Version 1)
Quarter: 2012Q4

REPORT INFORMATION
  Report Type: 
  Country: US (occurrence: US)
  Receive Date: 20120925
  Receipt Date: 20120925
  Transmission Date: 20130627
  Serious: No
  Sender: FDA-Public Use
  Company Number: US-BAYER-2012-099453

PATIENT
  Age: 75 Year
  Sex: Male
  Weight: 110 kg

DRUGS (4)
  1. ALEVE CAPLET/TABLET,MIDOL EXTENDED RELIEF CAPLET [Suspect]
     Indication: ARTHRITIS
     Dosage: 3 DF, BID
     Route: 048
     Dates: start: 20120918, end: 20120918
  2. LISINOPRIL [Concomitant]
  3. CARDOVAL [Concomitant]
  4. NIFEDIPINE [Concomitant]

REACTIONS (1)
  - Arthralgia [None]
